FAERS Safety Report 4550872-5 (Version None)
Quarter: 2004Q4

REPORT INFORMATION
  Report Type: 
  Country: None (occurrence: None)
  Receive Date: 20041217
  Receipt Date: 20040902
  Transmission Date: 20050328
  Serious: No
  Sender: FDA-Public Use
  Company Number: 2004-BP-07739BP(0)

PATIENT
  Sex: Female

DRUGS (8)
  1. SPIRIVA [Suspect]
     Indication: CHRONIC OBSTRUCTIVE AIRWAYS DISEASE
     Dosage: 18 MCG (18 MCG), IH
     Route: 055
     Dates: start: 20040101
  2. ADVAIR (SERETIDE MITE) [Concomitant]
  3. SINGLUAR (MONTELUKAST SODIUM) [Concomitant]
  4. LISINOPRIL [Concomitant]
  5. METFORMIN HCL [Concomitant]
  6. GLIPIZIDE [Concomitant]
  7. CRESTOR [Concomitant]
  8. CEFLEXIN [Concomitant]

REACTIONS (2)
  - INFECTION [None]
  - LARYNGITIS [None]
